FAERS Safety Report 19138257 (Version 2)
Quarter: 2021Q2

REPORT INFORMATION
  Report Type: Spontaneous
  Country: US (occurrence: US)
  Receive Date: 20210415
  Receipt Date: 20210416
  Transmission Date: 20210717
  Serious: No
  Sender: FDA-Public Use
  Company Number: US-SA-2021SA120301

PATIENT
  Age: 57 Year
  Sex: Male

DRUGS (6)
  1. DUPIXENT [Suspect]
     Active Substance: DUPILUMAB
     Indication: NASAL POLYPS
  2. GEMFIBROZIL. [Concomitant]
     Active Substance: GEMFIBROZIL
     Dosage: 600MG
  3. TUSSIONEX [HYDROCODONE;PHENYLTOLOXAMINE] [Concomitant]
     Active Substance: HYDROCODONE\PHENYLTOLOXAMINE
     Dosage: 10?8/5ML
  4. AMLODINE [AMLODIPINE] [Concomitant]
     Dosage: 5MG
  5. ATORVASTATIN [Concomitant]
     Active Substance: ATORVASTATIN
     Dosage: 10MG
  6. DUPIXENT [Suspect]
     Active Substance: DUPILUMAB
     Indication: HYPERTENSION
     Dosage: 300MG/ML: QOW
     Route: 058
     Dates: start: 20201117, end: 20210107

REACTIONS (2)
  - Drug ineffective [Unknown]
  - Product use in unapproved indication [Unknown]

NARRATIVE: CASE EVENT DATE: 20201117
